FAERS Safety Report 5278979-8 (Version None)
Quarter: 2007Q1

REPORT INFORMATION
  Report Type: 
  Country: None (occurrence: None)
  Receive Date: 20070328
  Receipt Date: 20061026
  Transmission Date: 20070707
  Serious: No
  Sender: FDA-Public Use
  Company Number: US-AMGEN-KDL198259

PATIENT
  Sex: Male

DRUGS (2)
  1. NEULASTA [Suspect]
     Indication: CHEMOTHERAPY
     Route: 065
     Dates: start: 20061020
  2. TAXOTERE [Concomitant]
     Route: 065

REACTIONS (2)
  - BONE PAIN [None]
  - MUSCULOSKELETAL STIFFNESS [None]
